FAERS Safety Report 18217792 (Version 2)
Quarter: 2020Q3

REPORT INFORMATION
  Report Type: Spontaneous
  Country: US (occurrence: US)
  Receive Date: 20200901
  Receipt Date: 20200917
  Transmission Date: 20201103
  Serious: Yes (Other)
  Sender: FDA-Public Use
  Company Number: US-BAYER-2020-177984

PATIENT
  Age: 47 Year
  Sex: Male

DRUGS (1)
  1. KOGENATE FS [Suspect]
     Active Substance: ANTIHEMOPHILIC FACTOR, HUMAN RECOMBINANT
     Dosage: 1772?2215 UN
     Route: 042

REACTIONS (2)
  - Traumatic fracture [None]
  - Fall [None]

NARRATIVE: CASE EVENT DATE: 20200822
